FAERS Safety Report 8428745-7 (Version None)
Quarter: 2012Q2

REPORT INFORMATION
  Report Type: 
  Country: None (occurrence: None)
  Receive Date: 20120605
  Receipt Date: 20120523
  Transmission Date: 20120825
  Serious: Yes (Hospitalization)
  Sender: FDA-Public Use
  Company Number: SAN_00068_2012

PATIENT
  Sex: Male
  Weight: 82.5547 kg

DRUGS (1)
  1. METFORMIN HYDROCHLORIDE [Suspect]
     Indication: PRODUCT USED FOR UNKNOWN INDICATION
     Dosage: DF
     Dates: start: 20110101, end: 20111230

REACTIONS (10)
  - CHEST PAIN [None]
  - HAEMORRHAGE [None]
  - DIARRHOEA [None]
  - RED BLOOD CELL ABNORMALITY [None]
  - PRODUCT SUBSTITUTION ISSUE [None]
  - BLOOD GLUCOSE INCREASED [None]
  - PRODUCT FORMULATION ISSUE [None]
  - ASTHENIA [None]
  - FATIGUE [None]
  - TINNITUS [None]
